FAERS Safety Report 5904853-7 (Version None)
Quarter: 2008Q4

REPORT INFORMATION
  Report Type: 
  Country: None (occurrence: None)
  Receive Date: 20081001
  Receipt Date: 20080923
  Transmission Date: 20090506
  Serious: Yes (Death, Life-Threatening, Hospitalization, Disabling)
  Sender: FDA-Public Use
  Company Number: A0737716A

PATIENT
  Age: 20 Year
  Sex: Male
  Weight: 86.4 kg

DRUGS (7)
  1. VENTOLIN [Suspect]
     Indication: ASTHMA
     Dosage: 2PUFF AS REQUIRED
     Route: 055
  2. COMBIVENT [Concomitant]
  3. SINGULAIR [Concomitant]
  4. GLUCOTROL [Concomitant]
  5. GLUCOPHAGE [Concomitant]
  6. LISINOPRIL [Concomitant]
  7. CARDIZEM [Concomitant]

REACTIONS (1)
  - ASTHMA [None]
